FAERS Safety Report 8587218-1 (Version None)
Quarter: 2012Q3

REPORT INFORMATION
  Report Type: 
  Country: None (occurrence: None)
  Receive Date: 20120810
  Receipt Date: 20110808
  Transmission Date: 20120928
  Serious: No
  Sender: FDA-Public Use
  Company Number: US-ASTRAZENECA-2011SE47293

PATIENT
  Sex: Female

DRUGS (6)
  1. PROPRANOLOL [Concomitant]
     Indication: HYPERTENSION
  2. TAMOXIFEN CITRATE [Suspect]
     Route: 048
  3. ZOMETA [Concomitant]
  4. ARIMIDEX [Suspect]
     Indication: BREAST CANCER
     Dosage: DAILY
     Route: 048
     Dates: start: 20110501
  5. OTHER MEDICATIONS [Concomitant]
  6. ZOLADEX [Concomitant]

REACTIONS (3)
  - ADVERSE EVENT [None]
  - PARAESTHESIA [None]
  - HYPOAESTHESIA [None]
